FAERS Safety Report 25952632 (Version 4)
Quarter: 2025Q4

REPORT INFORMATION
  Report Type: Report from Study
  Country: CO (occurrence: CO)
  Receive Date: 20251023
  Receipt Date: 20251212
  Transmission Date: 20260118
  Serious: Yes (Life-Threatening)
  Sender: NOVARTIS
  Company Number: CO-002147023-NVSC2025CO126225

PATIENT
  Sex: Female
  Weight: 28 kg

DRUGS (1)
  1. ILARIS [Suspect]
     Active Substance: CANAKINUMAB
     Indication: Juvenile idiopathic arthritis
     Dosage: 150 MG, QMO
     Route: 058
     Dates: start: 20250113

REACTIONS (4)
  - Rash [Unknown]
  - Pyrexia [Unknown]
  - Therapeutic response shortened [Unknown]
  - Off label use [Unknown]
